FAERS Safety Report 4818510-1 (Version None)
Quarter: 2005Q4

REPORT INFORMATION
  Report Type: 
  Country: None (occurrence: None)
  Receive Date: 20051031
  Receipt Date: 20051031
  Transmission Date: 20060501
  Serious: Yes (Hospitalization)
  Sender: FDA-Public Use
  Company Number: None

PATIENT
  Age: 83 Year
  Sex: Male

DRUGS (2)
  1. LOSARTAN 50 MG TABLET [Suspect]
     Indication: CARDIAC FAILURE
     Dosage: 1 TABLET EVERY MORNING BY MOUTH
     Dates: start: 20050419, end: 20050813
  2. LOSARTAN 50 MG TABLET [Suspect]
     Indication: HYPERTENSION
     Dosage: 1 TABLET EVERY MORNING BY MOUTH
     Dates: start: 20050419, end: 20050813

REACTIONS (1)
  - HYPERKALAEMIA [None]
